FAERS Safety Report 22609172 (Version 3)
Quarter: 2023Q2

REPORT INFORMATION
  Report Type: Spontaneous
  Country: US (occurrence: US)
  Receive Date: 20230616
  Receipt Date: 20230619
  Transmission Date: 20230721
  Serious: Yes (Life-Threatening, Hospitalization, Other)
  Sender: FDA-Public Use
  Company Number: US-SA-2023SA178894

PATIENT
  Age: 69 Year
  Sex: Female
  Weight: 64 kg

DRUGS (60)
  1. OXALIPLATIN [Suspect]
     Active Substance: OXALIPLATIN
     Dosage: 141 MG, QD
     Route: 042
     Dates: start: 20220831, end: 20220831
  2. OXALIPLATIN [Suspect]
     Active Substance: OXALIPLATIN
     Dosage: 112 MG, QD
     Route: 042
     Dates: start: 20220929, end: 20220929
  3. OXALIPLATIN [Suspect]
     Active Substance: OXALIPLATIN
     Dosage: 85 MG, QD
     Route: 042
     Dates: start: 20221019, end: 20221019
  4. OXALIPLATIN [Suspect]
     Active Substance: OXALIPLATIN
     Dosage: 57.5 MG, QD
     Route: 042
     Dates: start: 20221109, end: 20221109
  5. OXALIPLATIN [Suspect]
     Active Substance: OXALIPLATIN
     Dosage: 57.5 MG, QD
     Route: 042
     Dates: start: 20221130, end: 20221130
  6. OXALIPLATIN [Suspect]
     Active Substance: OXALIPLATIN
     Dosage: 57.5 MG, QD
     Route: 042
     Dates: start: 20221214, end: 20221214
  7. OXALIPLATIN [Suspect]
     Active Substance: OXALIPLATIN
     Dosage: 57.5 MG, QD
     Route: 042
     Dates: start: 20221228, end: 20221228
  8. OXALIPLATIN [Suspect]
     Active Substance: OXALIPLATIN
     Dosage: 57.5 MG, QD
     Route: 042
     Dates: start: 20230111, end: 20230111
  9. ZIMBERELIMAB [Suspect]
     Active Substance: ZIMBERELIMAB
     Indication: Colorectal cancer
     Dosage: 480 MG, QD
     Route: 042
     Dates: start: 20220831, end: 20220831
  10. ZIMBERELIMAB [Suspect]
     Active Substance: ZIMBERELIMAB
     Dosage: 480 MG
     Route: 048
     Dates: start: 20221019, end: 20221019
  11. ZIMBERELIMAB [Suspect]
     Active Substance: ZIMBERELIMAB
     Dosage: 480 MG
     Route: 048
     Dates: start: 20221130, end: 20221130
  12. ZIMBERELIMAB [Suspect]
     Active Substance: ZIMBERELIMAB
     Dosage: 480 MG
     Route: 048
     Dates: start: 20221228
  13. ETRUMADENANT [Suspect]
     Active Substance: ETRUMADENANT
     Indication: Colorectal cancer
     Dosage: 150 MG
     Route: 048
     Dates: start: 20220831, end: 20220831
  14. ETRUMADENANT [Suspect]
     Active Substance: ETRUMADENANT
     Dosage: 150 MG
     Route: 048
     Dates: start: 20221019, end: 20221123
  15. ETRUMADENANT [Suspect]
     Active Substance: ETRUMADENANT
     Dosage: 150 MG
     Route: 048
     Dates: start: 20221202, end: 20221227
  16. ETRUMADENANT [Suspect]
     Active Substance: ETRUMADENANT
     Dosage: 150 MG
     Route: 048
     Dates: start: 20230112, end: 20230124
  17. LEUCOVORIN CALCIUM [Suspect]
     Active Substance: LEUCOVORIN CALCIUM
     Indication: Colorectal cancer
     Dosage: 400 MG, QD
     Route: 042
     Dates: start: 20220831, end: 20220831
  18. LEUCOVORIN CALCIUM [Suspect]
     Active Substance: LEUCOVORIN CALCIUM
     Dosage: 99 MG, QD
     Route: 042
     Dates: start: 20220929, end: 20220929
  19. LEUCOVORIN CALCIUM [Suspect]
     Active Substance: LEUCOVORIN CALCIUM
     Dosage: 99 MG, QD
     Route: 042
     Dates: start: 20221019, end: 20221019
  20. LEUCOVORIN CALCIUM [Suspect]
     Active Substance: LEUCOVORIN CALCIUM
     Dosage: 99 MG, QD
     Route: 042
     Dates: start: 20221109, end: 20221109
  21. FLUOROURACIL [Suspect]
     Active Substance: FLUOROURACIL
     Indication: Colorectal cancer
     Dosage: 664 MG
     Route: 040
     Dates: start: 20220831, end: 20220831
  22. FLUOROURACIL [Suspect]
     Active Substance: FLUOROURACIL
     Dosage: 3984 MG
     Route: 041
     Dates: start: 20220831, end: 20220831
  23. FLUOROURACIL [Suspect]
     Active Substance: FLUOROURACIL
     Dosage: 531 MG
     Route: 040
     Dates: start: 20220929, end: 20220929
  24. FLUOROURACIL [Suspect]
     Active Substance: FLUOROURACIL
     Dosage: 3187 MG
     Route: 041
     Dates: start: 20220929, end: 20220929
  25. FLUOROURACIL [Suspect]
     Active Substance: FLUOROURACIL
     Dosage: 400 MG
     Route: 041
     Dates: start: 20221019, end: 20221019
  26. FLUOROURACIL [Suspect]
     Active Substance: FLUOROURACIL
     Dosage: 2400 MG
     Route: 041
     Dates: start: 20221019, end: 20221019
  27. FLUOROURACIL [Suspect]
     Active Substance: FLUOROURACIL
     Dosage: 265 MG
     Route: 041
     Dates: start: 20221109, end: 20221109
  28. FLUOROURACIL [Suspect]
     Active Substance: FLUOROURACIL
     Dosage: 1600 MG
     Route: 041
     Dates: start: 20221109, end: 20221109
  29. FLUOROURACIL [Suspect]
     Active Substance: FLUOROURACIL
     Dosage: 1600 MG, QD
     Route: 041
     Dates: start: 20221130, end: 20221130
  30. FLUOROURACIL [Suspect]
     Active Substance: FLUOROURACIL
     Dosage: 1600 MG, QD
     Route: 041
     Dates: start: 20221214, end: 20221214
  31. FLUOROURACIL [Suspect]
     Active Substance: FLUOROURACIL
     Dosage: 1600 MG, QD
     Route: 041
     Dates: start: 20221228, end: 20221228
  32. FLUOROURACIL [Suspect]
     Active Substance: FLUOROURACIL
     Dosage: 1600 MG, QD
     Route: 041
     Dates: start: 20230111, end: 20230111
  33. BEVACIZUMAB [Suspect]
     Active Substance: BEVACIZUMAB
     Indication: Colorectal cancer
     Dosage: 317 MG, QD
     Route: 042
     Dates: start: 20220831, end: 20220831
  34. BEVACIZUMAB [Suspect]
     Active Substance: BEVACIZUMAB
     Dosage: 317 MG
     Route: 042
     Dates: start: 20220929, end: 20220929
  35. BEVACIZUMAB [Suspect]
     Active Substance: BEVACIZUMAB
     Dosage: 300 MG, QD
     Route: 042
     Dates: start: 20221019, end: 20221019
  36. BEVACIZUMAB [Suspect]
     Active Substance: BEVACIZUMAB
     Dosage: 300 MG, QD
     Route: 042
     Dates: start: 20221109, end: 20221109
  37. BEVACIZUMAB [Suspect]
     Active Substance: BEVACIZUMAB
     Dosage: 300 MG, QD
     Route: 042
     Dates: start: 20221130, end: 20221130
  38. BEVACIZUMAB [Suspect]
     Active Substance: BEVACIZUMAB
     Dosage: 300 MG, QD
     Route: 042
     Dates: start: 20221228, end: 20221228
  39. BEVACIZUMAB [Suspect]
     Active Substance: BEVACIZUMAB
     Dosage: 300 MG, QD
     Route: 042
     Dates: start: 20230111, end: 20230111
  40. LEVOTHYROXINE [Concomitant]
     Active Substance: LEVOTHYROXINE
     Dosage: UNK
  41. OLANZAPINE [Concomitant]
     Active Substance: OLANZAPINE
  42. LOMOTIL [Concomitant]
     Active Substance: ATROPINE SULFATE\DIPHENOXYLATE HYDROCHLORIDE
  43. TBO FILGRASTIM [Concomitant]
     Dosage: UNK
     Dates: start: 20221003, end: 20221102
  44. IBUPROFEN [Concomitant]
     Active Substance: IBUPROFEN
  45. GABAPENTIN [Concomitant]
     Active Substance: GABAPENTIN
     Dosage: UNK
     Dates: start: 20171101
  46. CLARITIN [Concomitant]
     Active Substance: LORATADINE
  47. OXYCODONE [Concomitant]
     Active Substance: OXYCODONE
  48. ATIVAN [Concomitant]
     Active Substance: LORAZEPAM
  49. PROTONIX [Concomitant]
     Active Substance: PANTOPRAZOLE SODIUM
     Dosage: UNK
  50. IMODIUM [Concomitant]
     Active Substance: LOPERAMIDE HYDROCHLORIDE
     Dosage: UNK
  51. ADDERALL [Concomitant]
     Active Substance: AMPHETAMINE ASPARTATE\AMPHETAMINE SULFATE\DEXTROAMPHETAMINE SACCHARATE\DEXTROAMPHETAMINE SULFATE
  52. MS CONTIN [Concomitant]
     Active Substance: MORPHINE SULFATE
  53. DEXAMETHASONE [Concomitant]
     Active Substance: DEXAMETHASONE
  54. PROCHLORPERAZINE EDISYLATE [Concomitant]
     Active Substance: PROCHLORPERAZINE EDISYLATE
     Indication: Prophylaxis
  55. COLESTID [Concomitant]
     Active Substance: COLESTIPOL HYDROCHLORIDE
  56. MORPHINE [Concomitant]
     Active Substance: MORPHINE
     Dosage: UNK
  57. ACETAMINOPHEN\OXYCODONE HYDROCHLORIDE [Concomitant]
     Active Substance: ACETAMINOPHEN\OXYCODONE HYDROCHLORIDE
  58. POTASSIUM CHLORIDE [Concomitant]
     Active Substance: POTASSIUM CHLORIDE
     Dosage: UNK
  59. VENLAFAXINE [Concomitant]
     Active Substance: VENLAFAXINE HYDROCHLORIDE
     Dosage: UNK
  60. PROCHLORPERAZINE [Concomitant]
     Active Substance: PROCHLORPERAZINE
     Dosage: UNK

REACTIONS (3)
  - Febrile neutropenia [Recovered/Resolved with Sequelae]
  - Fatigue [Recovered/Resolved]
  - White blood cell count decreased [Recovered/Resolved]

NARRATIVE: CASE EVENT DATE: 20220914
